FAERS Safety Report 9699601 (Version 2)
Quarter: 2013Q4

REPORT INFORMATION
  Report Type: Spontaneous
  Country: US (occurrence: US)
  Receive Date: 20131120
  Receipt Date: 20131210
  Transmission Date: 20140711
  Serious: Yes (Other)
  Sender: FDA-Public Use
  Company Number: US-TEVA-372091USA

PATIENT
  Age: 31 Year
  Sex: Female
  Weight: 64.92 kg

DRUGS (3)
  1. PARAGARD 380A [Suspect]
     Indication: CONTRACEPTION
     Route: 015
     Dates: start: 20121120, end: 20121120
  2. PRENATAL VITAMINS [Concomitant]
     Indication: VITAMIN SUPPLEMENTATION
  3. ORAL CONTRACEPTIVES [Concomitant]

REACTIONS (2)
  - Embedded device [Recovering/Resolving]
  - Medical device complication [Recovering/Resolving]
